FAERS Safety Report 4412512-5 (Version None)
Quarter: 2004Q2

REPORT INFORMATION
  Report Type: 
  Country: None (occurrence: None)
  Receive Date: 20040630
  Receipt Date: 20040423
  Transmission Date: 20050107
  Serious: No
  Sender: FDA-Public Use
  Company Number: 04P-163-0258623-00

PATIENT
  Age: 53 Year
  Sex: Female
  Weight: 64.4108 kg

DRUGS (5)
  1. HUMIRA [Suspect]
     Indication: RHEUMATOID ARTHRITIS
     Dosage: 40 MG, SUBCUTANEOUS
     Route: 058
     Dates: start: 20030301, end: 20040422
  2. METHOTREXATE [Concomitant]
  3. PREDNISONE [Concomitant]
  4. WOMEN'S ONE A DAY [Concomitant]
  5. FOLIC ACID [Concomitant]

REACTIONS (2)
  - NASAL CONGESTION [None]
  - NASOPHARYNGITIS [None]
